FAERS Safety Report 11909530 (Version 1)
Quarter: 2016Q1

REPORT INFORMATION
  Report Type: Spontaneous
  Country: PL (occurrence: PL)
  Receive Date: 20160112
  Receipt Date: 20160112
  Transmission Date: 20160526
  Serious: Yes (Hospitalization)
  Sender: FDA-Public Use
  Company Number: PL-ALKEM-001427

PATIENT
  Age: 72 Year
  Sex: Female

DRUGS (4)
  1. GABAPENTIN. [Suspect]
     Active Substance: GABAPENTIN
     Indication: RESTLESS LEGS SYNDROME
     Dosage: AT INCREASED DOSE
  2. ROPINIROLE/ROPINIROLE HYDROCHLORIDE [Concomitant]
  3. CLONAZEPAM. [Concomitant]
     Active Substance: CLONAZEPAM
  4. AGOMELATINE [Concomitant]
     Active Substance: AGOMELATINE

REACTIONS (2)
  - Balance disorder [Unknown]
  - Dizziness [Unknown]
